FAERS Safety Report 5160526-2 (Version None)
Quarter: 2006Q4

REPORT INFORMATION
  Report Type: 
  Country: None (occurrence: None)
  Receive Date: 20061129
  Receipt Date: 20061121
  Transmission Date: 20070319
  Serious: Yes (Hospitalization)
  Sender: FDA-Public Use
  Company Number: US-ROXANE LABORATORIES, INC-2006-DE-06190GD

PATIENT
  Age: 74 Year
  Sex: Female

DRUGS (7)
  1. CALCIUM CARBONATE [Suspect]
     Route: 048
  2. CALCITRIOL [Suspect]
  3. NORTRIPTYLINE HCL [Concomitant]
  4. NEURONETIN [Concomitant]
  5. LISINOPRIL [Concomitant]
  6. ALENDRONATE SODIUM [Concomitant]
  7. OXYCODONE HCL [Concomitant]

REACTIONS (3)
  - HYPOCALCAEMIA [None]
  - HYPOMAGNESAEMIA [None]
  - MILK-ALKALI SYNDROME [None]
